FAERS Safety Report 24254715 (Version 1)
Quarter: 2024Q3

REPORT INFORMATION
  Report Type: Spontaneous
  Country: CA (occurrence: CA)
  Receive Date: 20240827
  Receipt Date: 20240827
  Transmission Date: 20241017
  Serious: Yes (Hospitalization)
  Sender: TEVA
  Company Number: CA-TEVA-VS-3234988

PATIENT
  Age: 77 Year
  Sex: Male

DRUGS (4)
  1. METHOTREXATE [Suspect]
     Active Substance: METHOTREXATE
     Indication: Product used for unknown indication
     Dosage: DESCRIPTION: METHOTREXATE INJECTION, BP, DOSE FORM; SOLUTION INTRA-ARTERIAL
     Route: 065
  2. CISPLATIN [Suspect]
     Active Substance: CISPLATIN
     Indication: Product used for unknown indication
     Dosage: DESCRIPTION: CISPLATIN INJECTION, DOSE FORM: SOLUTION INTRAVENOUS
     Route: 065
  3. VINBLASTINE SULFATE [Suspect]
     Active Substance: VINBLASTINE SULFATE
     Indication: Product used for unknown indication
     Dosage: DESCRIPTION: VINBLASTINE SULPHATE INJECTION, DOSE FORM: SOLUTION INTRAVENOUS
     Route: 065
  4. DOXORUBICIN HYDROCHLORIDE [Suspect]
     Active Substance: DOXORUBICIN HYDROCHLORIDE
     Indication: Product used for unknown indication
     Dosage: DESCRIPTION; DOXORUBICIN HYDROCHLORIDE INJECTION, DOSE FORM: SOLUTION INTRAVENOUS
     Route: 065

REACTIONS (1)
  - Adult failure to thrive [Unknown]
